FAERS Safety Report 4543918-1 (Version None)
Quarter: 2005Q1

REPORT INFORMATION
  Report Type: 
  Country: None (occurrence: None)
  Receive Date: 20050103
  Receipt Date: 20030804
  Transmission Date: 20050727
  Serious: Yes (Death, Other)
  Sender: FDA-Public Use
  Company Number: GXKR2003GB00504

PATIENT
  Age: 53 Year
  Sex: Female

DRUGS (1)
  1. METOCLOPRAMIDE [Suspect]
     Dosage: 10 MG/DAY

REACTIONS (1)
  - HYPOTENSION [None]
